FAERS Safety Report 24394041 (Version 1)
Quarter: 2024Q4

REPORT INFORMATION
  Report Type: Spontaneous
  Country: US (occurrence: US)
  Receive Date: 20241003
  Receipt Date: 20241003
  Transmission Date: 20250115
  Serious: Yes (Life-Threatening, Hospitalization)
  Sender: AMGEN
  Company Number: US-AMGEN-USASP2024192510

PATIENT
  Age: 57 Year
  Sex: Female

DRUGS (2)
  1. PREDNISONE [Suspect]
     Active Substance: PREDNISONE
     Indication: Eosinophilic pneumonia acute
     Dosage: UNK (TAPER OFF)
     Route: 065
  2. PREDNISONE [Suspect]
     Active Substance: PREDNISONE
     Dosage: UNK (TAPER OFF)
     Route: 065

REACTIONS (3)
  - Acute respiratory distress syndrome [Unknown]
  - Pneumonia staphylococcal [Unknown]
  - Eosinophilic pneumonia acute [Unknown]
